FAERS Safety Report 15453450 (Version 3)
Quarter: 2019Q1

REPORT INFORMATION
  Report Type: Spontaneous
  Country: PL (occurrence: PL)
  Receive Date: 20181001
  Receipt Date: 20190221
  Transmission Date: 20190417
  Serious: Yes (Death, Hospitalization, Other)
  Sender: FDA-Public Use
  Company Number: PL-MYLANLABS-2018M1071029

PATIENT
  Age: 61 Year
  Sex: Female

DRUGS (16)
  1. EVEROLIMUS. [Suspect]
     Active Substance: EVEROLIMUS
     Indication: RENAL TRANSPLANT
  2. THYMOGLOBULIN [Suspect]
     Active Substance: LAPINE T-LYMPHOCYTE IMMUNE GLOBULIN
     Indication: IMMUNOSUPPRESSANT DRUG THERAPY
     Dosage: UNK
  3. VANCOMYCIN                         /00314402/ [Concomitant]
     Active Substance: VANCOMYCIN
     Dosage: UNK
     Route: 065
  4. MEROPENEM. [Concomitant]
     Active Substance: MEROPENEM
     Dosage: UNK
     Route: 065
  5. TACROLIMUS. [Suspect]
     Active Substance: TACROLIMUS
     Indication: RENAL TRANSPLANT
     Dosage: UNK
     Route: 065
  6. TACROLIMUS. [Suspect]
     Active Substance: TACROLIMUS
     Indication: IMMUNOSUPPRESSANT DRUG THERAPY
  7. COLISTIN [Concomitant]
     Active Substance: COLISTIN
     Route: 065
  8. PREDNISONE. [Suspect]
     Active Substance: PREDNISONE
     Indication: RENAL TRANSPLANT
  9. CLARITHROMYCIN. [Concomitant]
     Active Substance: CLARITHROMYCIN
     Dosage: UNK
     Route: 065
  10. PREDNISONE. [Suspect]
     Active Substance: PREDNISONE
     Indication: IMMUNOSUPPRESSANT DRUG THERAPY
     Dosage: UNK
     Route: 065
  11. THYMOGLOBULIN [Suspect]
     Active Substance: LAPINE T-LYMPHOCYTE IMMUNE GLOBULIN
     Indication: RENAL TRANSPLANT
  12. CEFTRIAXONE. [Concomitant]
     Active Substance: CEFTRIAXONE
     Dosage: UNK
     Route: 065
  13. SULFAMETHOXAZOLE AND TRIMETHOPRIM [Concomitant]
     Active Substance: SULFAMETHOXAZOLE\TRIMETHOPRIM
     Dosage: UNK
     Route: 065
  14. LEVOFLOXACIN. [Concomitant]
     Active Substance: LEVOFLOXACIN
     Dosage: UNK
     Route: 065
  15. FLUCONAZOLE. [Concomitant]
     Active Substance: FLUCONAZOLE
     Dosage: UNK
     Route: 065
  16. EVEROLIMUS. [Suspect]
     Active Substance: EVEROLIMUS
     Indication: IMMUNOSUPPRESSANT DRUG THERAPY
     Dosage: UNK
     Route: 065

REACTIONS (10)
  - Acute respiratory distress syndrome [Fatal]
  - Complications of transplanted kidney [Unknown]
  - Respiratory failure [Unknown]
  - Pseudomonas test positive [Unknown]
  - Septic shock [Unknown]
  - Pneumonia influenzal [Unknown]
  - Multiple organ dysfunction syndrome [Fatal]
  - Pyrexia [Unknown]
  - Pseudomonas infection [Unknown]
  - Cough [Unknown]

NARRATIVE: CASE EVENT DATE: 2016
